FAERS Safety Report 14208097 (Version 1)
Quarter: 2017Q4

REPORT INFORMATION
  Report Type: Spontaneous
  Country: US (occurrence: US)
  Receive Date: 20171120
  Receipt Date: 20171120
  Transmission Date: 20180321
  Serious: Yes (Other)
  Sender: FDA-Public Use
  Company Number: None

PATIENT
  Age: 45 Year
  Sex: Female
  Weight: 66.6 kg

DRUGS (3)
  1. FERUMOXYTOL [Suspect]
     Active Substance: FERUMOXYTOL NON-STOICHIOMETRIC MAGNETITE
     Indication: IRON DEFICIENCY ANAEMIA
     Route: 042
     Dates: start: 20171021, end: 20171021
  2. SENNA [Concomitant]
     Active Substance: SENNA LEAF\SENNOSIDES\SENNOSIDES A AND B
  3. DOCUSATE [Concomitant]
     Active Substance: DOCUSATE

REACTIONS (3)
  - Blood pressure increased [None]
  - Loss of consciousness [None]
  - Hyperhidrosis [None]

NARRATIVE: CASE EVENT DATE: 20171021
